FAERS Safety Report 9592890 (Version 1)
Quarter: 2013Q4

REPORT INFORMATION
  Report Type: Spontaneous
  Country: US (occurrence: None)
  Receive Date: 20131002
  Receipt Date: 20131002
  Transmission Date: 20140711
  Serious: Yes (Death, Life-Threatening, Hospitalization)
  Sender: FDA-Public Use
  Company Number: DAV-AE-MTX-13-53

PATIENT
  Age: 72 Year
  Sex: Male

DRUGS (2)
  1. METHOTREXATE [Suspect]
     Indication: RHEUMATOID ARTHRITIS
     Route: 048
  2. DEXAMETHASONE INTRAVENOUS [Concomitant]

REACTIONS (5)
  - Cardiac failure [None]
  - Urosepsis [None]
  - Atrial fibrillation [None]
  - Depressed level of consciousness [None]
  - Necrotising fasciitis [None]
